FAERS Safety Report 21683805 (Version 2)
Quarter: 2023Q1

REPORT INFORMATION
  Report Type: Spontaneous
  Country: AR (occurrence: AR)
  Receive Date: 20221205
  Receipt Date: 20230119
  Transmission Date: 20230418
  Serious: Yes (Other)
  Sender: FDA-Public Use
  Company Number: AR-002147023-NVSC2022AR275206

PATIENT

DRUGS (1)
  1. RUXOLITINIB [Suspect]
     Active Substance: RUXOLITINIB
     Indication: Myelofibrosis
     Dosage: 20 MG, Q12H
     Route: 065
     Dates: start: 20170201, end: 202211

REACTIONS (2)
  - Anaemia [Unknown]
  - Transformation to acute myeloid leukaemia [Unknown]

NARRATIVE: CASE EVENT DATE: 20220101
